FAERS Safety Report 24079785 (Version 4)
Quarter: 2024Q3

REPORT INFORMATION
  Report Type: Spontaneous
  Country: US (occurrence: US)
  Receive Date: 20240711
  Receipt Date: 20240909
  Transmission Date: 20241016
  Serious: No
  Sender: ROCHE
  Company Number: US-ROCHE-3517284

PATIENT
  Sex: Female

DRUGS (26)
  1. ERIVEDGE [Suspect]
     Active Substance: VISMODEGIB
     Indication: Basal cell carcinoma
     Route: 048
  2. ERIVEDGE [Suspect]
     Active Substance: VISMODEGIB
     Route: 048
  3. ERIVEDGE [Suspect]
     Active Substance: VISMODEGIB
     Route: 048
  4. ERIVEDGE [Suspect]
     Active Substance: VISMODEGIB
     Route: 048
  5. ERIVEDGE [Suspect]
     Active Substance: VISMODEGIB
     Route: 048
  6. ADDERALL [Concomitant]
     Active Substance: AMPHETAMINE ASPARTATE\AMPHETAMINE SULFATE\DEXTROAMPHETAMINE SACCHARATE\DEXTROAMPHETAMINE SULFATE
  7. BUSPIRONE [Concomitant]
     Active Substance: BUSPIRONE HYDROCHLORIDE
  8. CETIRIZINE [Concomitant]
     Active Substance: CETIRIZINE HYDROCHLORIDE
  9. COLESTIPOL [Concomitant]
     Active Substance: COLESTIPOL
  10. DIVALPROEX SODIUM [Concomitant]
     Active Substance: DIVALPROEX SODIUM
  11. FERROUS SULFATE [Concomitant]
     Active Substance: FERROUS SULFATE
  12. GLIPIZIDE [Concomitant]
     Active Substance: GLIPIZIDE
  13. HYDROCHLOROTHIAZIDE [Concomitant]
     Active Substance: HYDROCHLOROTHIAZIDE
  14. HYDROCODONE [Concomitant]
     Active Substance: HYDROCODONE
  15. JARDIANCE [Concomitant]
     Active Substance: EMPAGLIFLOZIN
  16. LOSARTAN [Concomitant]
     Active Substance: LOSARTAN\LOSARTAN POTASSIUM
  17. NOVOLOG [Concomitant]
     Active Substance: INSULIN ASPART
  18. OMEPRAZOLE [Concomitant]
     Active Substance: OMEPRAZOLE
  19. PROMETHAZINE [Concomitant]
     Active Substance: PROMETHAZINE HYDROCHLORIDE
  20. ROSUVASTATIN [Concomitant]
     Active Substance: ROSUVASTATIN\ROSUVASTATIN CALCIUM
  21. TIZANIDINE [Concomitant]
     Active Substance: TIZANIDINE
  22. VENLAFAXINE [Concomitant]
     Active Substance: VENLAFAXINE HYDROCHLORIDE
  23. IRON [Concomitant]
     Active Substance: IRON
  24. MAGNESIUM [Concomitant]
     Active Substance: MAGNESIUM
  25. CHOLECALCIFEROL [Concomitant]
     Active Substance: CHOLECALCIFEROL
  26. MOUNJARO SOP [Concomitant]

REACTIONS (20)
  - Alopecia [Not Recovered/Not Resolved]
  - Fatigue [Not Recovered/Not Resolved]
  - Nausea [Not Recovered/Not Resolved]
  - Asthenia [Not Recovered/Not Resolved]
  - Pain [Not Recovered/Not Resolved]
  - Muscle spasms [Unknown]
  - Arthropathy [Unknown]
  - Alopecia [Unknown]
  - Nausea [Unknown]
  - Asthenia [Unknown]
  - Bruxism [Unknown]
  - Fatigue [Unknown]
  - Constipation [Unknown]
  - Decreased appetite [Unknown]
  - Back disorder [Unknown]
  - Joint dislocation [Unknown]
  - Tooth fracture [Unknown]
  - Pain [Unknown]
  - Depression [Unknown]
  - Muscle spasms [Not Recovered/Not Resolved]
